FAERS Safety Report 6376427-8 (Version None)
Quarter: 2009Q3

REPORT INFORMATION
  Report Type: 
  Country: None (occurrence: None)
  Receive Date: 20090922
  Receipt Date: 20090922
  Transmission Date: 20100115
  Serious: Yes (Other)
  Sender: FDA-Public Use
  Company Number: None

PATIENT
  Age: 41 Year
  Sex: Female
  Weight: 77.1115 kg

DRUGS (1)
  1. FAMCICLOVIR [Suspect]
     Indication: ORAL HERPES
     Dosage: 500 MG 3 TIMES A DAY PO
     Route: 048

REACTIONS (2)
  - FEELING ABNORMAL [None]
  - SELF INJURIOUS BEHAVIOUR [None]
